FAERS Safety Report 19068631 (Version 1)
Quarter: 2021Q1

REPORT INFORMATION
  Report Type: Spontaneous
  Country: US (occurrence: US)
  Receive Date: 20210328
  Receipt Date: 20210328
  Transmission Date: 20210420
  Serious: Yes (Life-Threatening, Congenital Anomaly)
  Sender: FDA-Public Use
  Company Number: None

PATIENT
  Age: 1 Year
  Sex: Male
  Weight: 10.35 kg

DRUGS (1)
  1. MAKENA [Suspect]
     Active Substance: HYDROXYPROGESTERONE CAPROATE
     Indication: PREMATURE LABOUR
     Dosage: ?          OTHER FREQUENCY:ONCE EVERY WEEK;OTHER ROUTE:INJECTION TO MY ARM?
     Dates: start: 20200215, end: 20201116

REACTIONS (10)
  - Oxygen saturation decreased [None]
  - Seizure [None]
  - COVID-19 [None]
  - Pneumonia [None]
  - Uterine spasm [None]
  - Blood glucose decreased [None]
  - Choking [None]
  - Eating disorder [None]
  - Nasopharyngitis [None]
  - Gastrooesophageal reflux disease [None]

NARRATIVE: CASE EVENT DATE: 20201118
